FAERS Safety Report 10610525 (Version 1)
Quarter: 2014Q4

REPORT INFORMATION
  Report Type: Spontaneous
  Country: IL (occurrence: None)
  Receive Date: 20141124
  Receipt Date: 20141124
  Transmission Date: 20150529
  Serious: Yes (Hospitalization)
  Sender: FDA-Public Use
  Company Number: AG-2014-005927

PATIENT
  Age: 75 Year
  Sex: Male

DRUGS (10)
  1. OMNIC [Concomitant]
     Active Substance: TAMSULOSIN HYDROCHLORIDE
  2. ALLORIL [Concomitant]
  3. OBINUTUZUMAB [Suspect]
     Active Substance: OBINUTUZUMAB
     Indication: CHRONIC LYMPHOCYTIC LEUKAEMIA
     Route: 042
     Dates: start: 20140701, end: 20140701
  4. PLAVIX [Concomitant]
     Active Substance: CLOPIDOGREL BISULFATE
  5. FLIXOTIDE (INHALER) [Concomitant]
  6. AEROVENT [Concomitant]
  7. PHENERGAN [Concomitant]
     Active Substance: PROMETHAZINE HYDROCHLORIDE
  8. VENTOLIN (INHALER) [Concomitant]
  9. CHLORAMBUCIL [Suspect]
     Active Substance: CHLORAMBUCIL
     Indication: CHRONIC LYMPHOCYTIC LEUKAEMIA
     Route: 048
     Dates: start: 20140701, end: 20140701
  10. LOSEC [Concomitant]
     Active Substance: OMEPRAZOLE

REACTIONS (4)
  - Escherichia bacteraemia [None]
  - Infusion related reaction [None]
  - Pyrexia [None]
  - Abdominal pain [None]

NARRATIVE: CASE EVENT DATE: 20140911
